FAERS Safety Report 4989068-1 (Version None)
Quarter: 2006Q2

REPORT INFORMATION
  Report Type: 
  Country: None (occurrence: None)
  Receive Date: 20060425
  Receipt Date: 20060404
  Transmission Date: 20061013
  Serious: Yes (Hospitalization)
  Sender: FDA-Public Use
  Company Number: 2006053835

PATIENT
  Age: 65 Year
  Sex: Female

DRUGS (7)
  1. ATARAX [Suspect]
     Indication: DEPRESSION
     Dosage: 75 MG (75 MG, 1 IN 1 D), ORAL
     Route: 048
     Dates: start: 20050115
  2. PROZAC [Suspect]
     Indication: DEPRESSION
     Dosage: 20 MG (20 MG, 1 IN 1 D), ORAL
     Route: 048
     Dates: start: 20050115, end: 20060223
  3. ABILIFY [Suspect]
     Indication: DEPRESSION
     Dosage: 10 MG (10 MG, 1 IN 1 D), ORAL
     Route: 048
     Dates: start: 20051115, end: 20060223
  4. KARDEGIC (ACETYLSALICYLATE LYSINE) [Concomitant]
  5. COAPROVEL (HYDROCHLOROTHIAZIDE, IRBESARTAN) [Concomitant]
  6. RILMENIDINE (RILMENIDINE) [Concomitant]
  7. LACTULOSE [Concomitant]

REACTIONS (4)
  - CONVULSION [None]
  - DRUG INTERACTION POTENTIATION [None]
  - FALL [None]
  - LOSS OF CONSCIOUSNESS [None]
